FAERS Safety Report 4670862-1 (Version None)
Quarter: 2005Q2

REPORT INFORMATION
  Report Type: 
  Country: None (occurrence: None)
  Receive Date: 20050523
  Receipt Date: 20050510
  Transmission Date: 20051028
  Serious: Yes (Hospitalization)
  Sender: FDA-Public Use
  Company Number: 2005073120

PATIENT
  Age: 48 Year
  Sex: Female
  Weight: 88.8 kg

DRUGS (4)
  1. EPIRUBICIN [Suspect]
     Indication: ILL-DEFINED DISORDER
     Dosage: 172 MG
  2. ZOLEDRONIC ACID (ZOLEDRONIC ACID) [Suspect]
     Indication: METASTASES TO BONE
     Dosage: 4 MG (3 TIMES A WEEK) INTRAVENOUS
     Route: 042
     Dates: start: 20040809
  3. CYCLOPHOSPHAMIDE [Suspect]
     Indication: ILL-DEFINED DISORDER
     Dosage: 1160 MG INTRAVENOUS
     Route: 042
  4. ENOXAPARIN SODIUM [Concomitant]

REACTIONS (4)
  - BURSITIS [None]
  - CELLULITIS [None]
  - DYSPNOEA [None]
  - PAIN IN EXTREMITY [None]
